FAERS Safety Report 8213057-7 (Version None)
Quarter: 2012Q1

REPORT INFORMATION
  Report Type: 
  Country: None (occurrence: None)
  Receive Date: 20120315
  Receipt Date: 20120313
  Transmission Date: 20120608
  Serious: Yes (Hospitalization)
  Sender: FDA-Public Use
  Company Number: DE-AMGEN-DEUSP2012009843

PATIENT
  Age: 48 Year
  Sex: Female
  Weight: 40 kg

DRUGS (4)
  1. LACTULOSE [Concomitant]
     Indication: CONSTIPATION
     Dosage: 20 ML, QD
     Route: 048
  2. DIPYRONE TAB [Concomitant]
     Indication: PAIN
     Dosage: 40 UNK, UNK
     Route: 048
  3. PROLIA [Suspect]
     Indication: OSTEOPOROSIS
     Dosage: 60 MG, ONE TIME DOSE
     Route: 058
     Dates: start: 20111228
  4. DURAGESIC-100 [Concomitant]
     Indication: PAIN
     Dosage: UNK UNK, TID
     Route: 061

REACTIONS (2)
  - HYPOCALCAEMIA [None]
  - MUSCLE SPASMS [None]
